FAERS Safety Report 25058402 (Version 2)
Quarter: 2025Q3

REPORT INFORMATION
  Report Type: Report from Study
  Country: US (occurrence: US)
  Receive Date: 20250310
  Receipt Date: 20250803
  Transmission Date: 20251020
  Serious: Yes (Other)
  Sender: ALEXION PHARMACEUTICALS
  Company Number: US-AstraZeneca-CH-00819886A

PATIENT
  Sex: Female
  Weight: 81.6 kg

DRUGS (8)
  1. OSIMERTINIB [Suspect]
     Active Substance: OSIMERTINIB
     Indication: Lung neoplasm malignant
     Dosage: 80 MILLIGRAM, QD
     Dates: start: 20230130
  2. ELIQUIS [Concomitant]
     Active Substance: APIXABAN
     Route: 065
  3. KEPPRA [Concomitant]
     Active Substance: LEVETIRACETAM
     Route: 065
  4. PANTOPRAZOLE SODIUM [Concomitant]
     Active Substance: PANTOPRAZOLE SODIUM
     Route: 065
  5. MINERALS\VITAMINS [Concomitant]
     Active Substance: MINERALS\VITAMINS
     Route: 065
  6. CLOBETASOL [Concomitant]
     Active Substance: CLOBETASOL
     Route: 065
  7. Fiberlax [Concomitant]
     Route: 065
  8. BIOTIN [Concomitant]
     Active Substance: BIOTIN
     Route: 065

REACTIONS (3)
  - Gene mutation [Unknown]
  - Rash [Unknown]
  - Nail disorder [Unknown]
